FAERS Safety Report 22295195 (Version 2)
Quarter: 2023Q2

REPORT INFORMATION
  Report Type: Spontaneous
  Country: US (occurrence: US)
  Receive Date: 20230508
  Receipt Date: 20230518
  Transmission Date: 20230722
  Serious: No
  Sender: FDA-Public Use
  Company Number: US-002147023-NVSC2023US104712

PATIENT
  Sex: Male

DRUGS (2)
  1. SANDIMMUNE [Suspect]
     Active Substance: CYCLOSPORINE
     Indication: Product used for unknown indication
     Dosage: 1 DOSAGE FORM (100/50 MG/ML)
     Route: 065
  2. SANDIMMUNE [Suspect]
     Active Substance: CYCLOSPORINE
     Dosage: 50 MG (X2)
     Route: 048

REACTIONS (7)
  - Urticaria [Unknown]
  - Rash [Unknown]
  - Skin mass [Unknown]
  - Pruritus [Unknown]
  - Syringe issue [Unknown]
  - Product physical issue [Unknown]
  - Incorrect drug administration rate [Unknown]
